FAERS Safety Report 6271939-X (Version None)
Quarter: 2009Q3

REPORT INFORMATION
  Report Type: 
  Country: None (occurrence: None)
  Receive Date: 20090713
  Receipt Date: 20090602
  Transmission Date: 20100115
  Serious: No
  Sender: FDA-Public Use
  Company Number: 2009BM000123

PATIENT
  Age: 38 Year
  Sex: Female
  Weight: 56 kg

DRUGS (6)
  1. KUVAN [Suspect]
     Indication: PHENYLKETONURIA
     Dosage: 1100 MG;QD;PO  : 900 MG;QD;PO
     Route: 048
     Dates: start: 20090320, end: 20090602
  2. KUVAN [Suspect]
     Indication: PHENYLKETONURIA
     Dosage: 1100 MG;QD;PO  : 900 MG;QD;PO
     Route: 048
     Dates: start: 20090603
  3. CYMBALTA [Suspect]
     Indication: DRUG USE FOR UNKNOWN INDICATION
     Dosage: 60 MG;QD
     Dates: start: 20071101
  4. XANAX [Concomitant]
  5. PREVACID [Concomitant]
  6. NUTRIENTS WITHOUT PHENYLALANINE [Concomitant]

REACTIONS (4)
  - CHILLS [None]
  - DRUG INTERACTION [None]
  - HOT FLUSH [None]
  - NIGHT SWEATS [None]
